FAERS Safety Report 8560343-7 (Version None)
Quarter: 2012Q3

REPORT INFORMATION
  Report Type: 
  Country: None (occurrence: None)
  Receive Date: 20120802
  Receipt Date: 20120719
  Transmission Date: 20120928
  Serious: Yes (Other)
  Sender: FDA-Public Use
  Company Number: CA-ELI_LILLY_AND_COMPANY-CA201207006318

PATIENT
  Sex: Female

DRUGS (3)
  1. CYMBALTA [Suspect]
     Dosage: 30 MG, QOD
  2. THYROID THERAPY [Concomitant]
  3. CYMBALTA [Suspect]
     Dosage: 60 MG, UNKNOWN
     Dates: start: 20120401

REACTIONS (3)
  - MUSCULOSKELETAL STIFFNESS [None]
  - FLATULENCE [None]
  - SKIN EXFOLIATION [None]
